FAERS Safety Report 24722428 (Version 2)
Quarter: 2024Q4

REPORT INFORMATION
  Report Type: Spontaneous
  Country: US (occurrence: US)
  Receive Date: 20241211
  Receipt Date: 20241216
  Transmission Date: 20250114
  Serious: Yes (Other)
  Sender: PFIZER
  Company Number: US-PFIZER INC-202400321819

PATIENT
  Age: 68 Year
  Sex: Female

DRUGS (1)
  1. LITFULO [Suspect]
     Active Substance: RITLECITINIB TOSYLATE
     Dosage: 50 MG, 1X/DAY, TAKE 1 (50MG) CAP PO (PER ORAL) QD (ONCE A DAY)
     Route: 048
     Dates: start: 20241106, end: 20241124

REACTIONS (2)
  - Hypersensitivity [Unknown]
  - Urticaria [Unknown]
